FAERS Safety Report 21072575 (Version 2)
Quarter: 2022Q3

REPORT INFORMATION
  Report Type: Spontaneous
  Country: US (occurrence: US)
  Receive Date: 20220712
  Receipt Date: 20220826
  Transmission Date: 20221027
  Serious: Yes (Other)
  Sender: FDA-Public Use
  Company Number: US-PFIZER INC-202200949220

PATIENT
  Age: 79 Year
  Sex: Female

DRUGS (2)
  1. IBRANCE [Suspect]
     Active Substance: PALBOCICLIB
     Indication: Breast cancer female
     Dosage: 125 MG, CYCLIC, (ONE TABLET DAILY FOR 21 DAYS AND THEN OFF 7 DAYS)
     Dates: start: 20220527
  2. IBRANCE [Suspect]
     Active Substance: PALBOCICLIB
     Dosage: 100 MG, CYCLIC (ONE TABLET DAILY BY MOUTH FOR 21 DAYS THEN FOLLOWED BY 7 DAYS OFF)
     Route: 048
     Dates: start: 20220527, end: 20220818

REACTIONS (2)
  - Leukopenia [Not Recovered/Not Resolved]
  - Neutropenia [Unknown]

NARRATIVE: CASE EVENT DATE: 20220616
